FAERS Safety Report 9426418 (Version 1)
Quarter: 2013Q3

REPORT INFORMATION
  Report Type: Spontaneous
  Country: US (occurrence: US)
  Receive Date: 20130730
  Receipt Date: 20130730
  Transmission Date: 20140515
  Serious: Yes (Hospitalization)
  Sender: FDA-Public Use
  Company Number: US-BAYER-2013-091137

PATIENT
  Age: 27 Year
  Sex: Female
  Weight: 64.4 kg

DRUGS (3)
  1. YAZ [Suspect]
  2. YASMIN [Suspect]
  3. SYNTHROID [Concomitant]

REACTIONS (3)
  - Ovarian vein thrombosis [None]
  - Renal vein thrombosis [None]
  - Transient ischaemic attack [None]
